FAERS Safety Report 8805036 (Version 1)
Quarter: 2012Q4

REPORT INFORMATION
  Report Type: 
  Country: BR (occurrence: BR)
  Receive Date: 20120924
  Receipt Date: 20120924
  Transmission Date: 20130627
  Serious: Yes (Hospitalization, Other)
  Sender: FDA-Public Use
  Company Number: PHHY2012BR080555

PATIENT
  Age: 24 Year
  Sex: Female
  Weight: 62 kg

DRUGS (7)
  1. BUDESONIDE, FORMOTEROL FUMARATE [Suspect]
     Dosage: UNK UKN, BID
  2. FENOTEROL [Concomitant]
     Dosage: UNK UKN, UNK
  3. BUDESONIDE [Concomitant]
     Dosage: 32 ug, BID
     Route: 045
  4. BUDESONIDE [Concomitant]
     Dosage: 64 ug, BID
     Route: 045
  5. OMEPRAZOLE [Concomitant]
     Dosage: 20 mg, QD
  6. FLUTICASONE W/SALMETEROL [Concomitant]
     Dosage: 500/50ug twice a day
  7. FLUTICASONE W/SALMETEROL [Concomitant]
     Dosage: 250/50 ug twice a day

REACTIONS (6)
  - Asthma [Recovering/Resolving]
  - Dyspnoea [Recovering/Resolving]
  - Wheezing [Recovering/Resolving]
  - Night sweats [Recovering/Resolving]
  - Rhinorrhoea [Recovering/Resolving]
  - Nasal obstruction [Recovering/Resolving]
